FAERS Safety Report 20043382 (Version 1)
Quarter: 2021Q4

REPORT INFORMATION
  Report Type: Spontaneous
  Country: CH (occurrence: CH)
  Receive Date: 20211108
  Receipt Date: 20211108
  Transmission Date: 20220303
  Serious: Yes (Life-Threatening, Hospitalization, Disabling, Other)
  Sender: FDA-Public Use
  Company Number: None

PATIENT
  Age: 85 Year
  Sex: Male

DRUGS (10)
  1. METHOTREXATE SODIUM [Suspect]
     Active Substance: METHOTREXATE SODIUM
     Indication: Diffuse large B-cell lymphoma
     Dosage: UNK UNK, CYCLIC (HIGH DOSE)
     Route: 042
     Dates: start: 20210201, end: 20210222
  2. MABTHERA [Suspect]
     Active Substance: RITUXIMAB
     Indication: Diffuse large B-cell lymphoma
     Dosage: UNK UNK, CYCLIC
     Route: 042
     Dates: start: 20200924, end: 20210401
  3. PERINDOPRIL [Concomitant]
     Active Substance: PERINDOPRIL
     Indication: Product used for unknown indication
     Dosage: UNK
     Route: 065
  4. PREDNISONE [Concomitant]
     Active Substance: PREDNISONE
     Indication: Product used for unknown indication
     Dosage: UNK UNK, CYCLIC
     Route: 048
     Dates: start: 20200924, end: 20210111
  5. ETOPOPHOS [Concomitant]
     Active Substance: ETOPOSIDE PHOSPHATE
     Indication: Product used for unknown indication
     Dosage: UNK UNK, CYCLIC
     Route: 042
     Dates: start: 20200924, end: 20210111
  6. DOXORUBICIN HYDROCHLORIDE [Concomitant]
     Active Substance: DOXORUBICIN HYDROCHLORIDE
     Indication: Product used for unknown indication
     Dosage: UNK UNK, CYCLIC
     Route: 042
     Dates: start: 20200924, end: 20210111
  7. VINCRISTINE [Concomitant]
     Active Substance: VINCRISTINE
     Indication: Product used for unknown indication
     Dosage: UNK UNK, CYCLIC
     Route: 042
     Dates: start: 20200924, end: 20210111
  8. CYCLOPHOSPHAMIDE [Concomitant]
     Active Substance: CYCLOPHOSPHAMIDE
     Indication: Product used for unknown indication
     Dosage: UNK UNK, CYCLIC
     Route: 042
     Dates: start: 20200924, end: 20210111
  9. NEULASTA [Concomitant]
     Active Substance: PEGFILGRASTIM
     Indication: Product used for unknown indication
     Dosage: UNK UNK, CYCLIC
     Route: 058
     Dates: start: 20200924, end: 20210111
  10. ALLOPURINOL [Concomitant]
     Active Substance: ALLOPURINOL
     Indication: Product used for unknown indication
     Dosage: 300 MG
     Route: 048
     Dates: start: 20200624, end: 20210111

REACTIONS (1)
  - Hepatitis B reactivation [Not Recovered/Not Resolved]

NARRATIVE: CASE EVENT DATE: 20210819
